FAERS Safety Report 18307255 (Version 2)
Quarter: 2020Q4

REPORT INFORMATION
  Report Type: Spontaneous
  Country: NL (occurrence: DE)
  Receive Date: 20200924
  Receipt Date: 20201223
  Transmission Date: 20210113
  Serious: No
  Sender: FDA-Public Use
  Company Number: DE-FRESENIUS KABI-FK202009613

PATIENT
  Sex: Male

DRUGS (5)
  1. ATEZOLIZUMAB. [Suspect]
     Active Substance: ATEZOLIZUMAB
     Dosage: SIX CYCLES IN COMBINATION WITH CARBOPLATIN AND ETOPOSIDE
     Route: 065
     Dates: start: 2020, end: 2020
  2. ATEZOLIZUMAB. [Suspect]
     Active Substance: ATEZOLIZUMAB
     Indication: SMALL CELL LUNG CANCER
     Dosage: AS MONOTHERAPY
     Route: 065
     Dates: start: 202008
  3. LEVOTHYROXINE. [Concomitant]
     Active Substance: LEVOTHYROXINE
     Indication: PRODUCT USED FOR UNKNOWN INDICATION
     Route: 065
  4. CARBOPLATIN (MANUFACTURER UNKNOWN) [Suspect]
     Active Substance: CARBOPLATIN
     Indication: SMALL CELL LUNG CANCER
     Dosage: SIX CYCLES IN COMBINATION WITH TECENTRIQ AND ETOPOSID
     Route: 065
     Dates: start: 2020, end: 2020
  5. ETOPOSIDE. [Suspect]
     Active Substance: ETOPOSIDE
     Indication: SMALL CELL LUNG CANCER
     Dosage: SIX CYCLES IN COMBINATION WITH TECENTRIQ AND CARBOPLATIN
     Route: 065
     Dates: start: 2020, end: 2020

REACTIONS (4)
  - Bronchitis [Unknown]
  - Mucosal inflammation [Recovering/Resolving]
  - Scleroderma [Not Recovered/Not Resolved]
  - Hypophysitis [Unknown]

NARRATIVE: CASE EVENT DATE: 202008
